FAERS Safety Report 12584290 (Version 2)
Quarter: 2016Q3

REPORT INFORMATION
  Report Type: Spontaneous
  Country: JP (occurrence: JP)
  Receive Date: 20160722
  Receipt Date: 20160804
  Transmission Date: 20161109
  Serious: Yes (Life-Threatening, Other)
  Sender: FDA-Public Use
  Company Number: JP-PFIZER INC-2016353661

PATIENT
  Age: 31 Year
  Sex: Female

DRUGS (3)
  1. TRAMAL [Concomitant]
     Active Substance: TRAMADOL
     Indication: CERVICOBRACHIAL SYNDROME
     Dosage: UNK UNK, UNKNOWN FREQ.
     Route: 048
  2. CELECOX [Suspect]
     Active Substance: CELECOXIB
     Indication: CERVICOBRACHIAL SYNDROME
     Dosage: 100 MG, ONCE DAILY, IN THE MORNING
     Route: 048
  3. VONOPRAZAN [Concomitant]
     Active Substance: VONOPRAZAN
     Indication: CERVICOBRACHIAL SYNDROME
     Dosage: UNK UNK, UNKNOWN FREQ.
     Route: 048

REACTIONS (1)
  - Electrocardiogram QT prolonged [Recovered/Resolved]

NARRATIVE: CASE EVENT DATE: 20160708
